FAERS Safety Report 6981135-6 (Version None)
Quarter: 2010Q3

REPORT INFORMATION
  Report Type: 
  Country: None (occurrence: None)
  Receive Date: 20100914
  Receipt Date: 20100902
  Transmission Date: 20110219
  Serious: Yes (Death, Other)
  Sender: FDA-Public Use
  Company Number: US-PFIZER INC-2010082990

PATIENT
  Sex: Male

DRUGS (4)
  1. CHANTIX [Suspect]
     Indication: SMOKING CESSATION THERAPY
     Dosage: STARTER AND CONTINUING MONTH PACKS
     Dates: end: 20090724
  2. ACETYLSALICYLIC ACID [Concomitant]
     Indication: INTERMITTENT CLAUDICATION
     Dosage: UNK
     Dates: start: 20050401, end: 20090701
  3. BENICAR [Concomitant]
     Indication: HYPERTENSION
     Dosage: UNK
     Dates: start: 20050101, end: 20090701
  4. NEBIVOLOL [Concomitant]
     Indication: HYPERTENSION
     Dosage: UNK
     Dates: start: 20080825, end: 20090701

REACTIONS (6)
  - COMPLETED SUICIDE [None]
  - DEPRESSION [None]
  - MENTAL DISORDER [None]
  - MOOD SWINGS [None]
  - NIGHTMARE [None]
  - PERSONALITY CHANGE [None]
